FAERS Safety Report 18401548 (Version 1)
Quarter: 2020Q4

REPORT INFORMATION
  Report Type: Spontaneous
  Country: US (occurrence: US)
  Receive Date: 20201020
  Receipt Date: 20201020
  Transmission Date: 20210114
  Serious: No
  Sender: FDA-Public Use
  Company Number: US-TEVA-2020-US-1839248

PATIENT
  Sex: Female

DRUGS (1)
  1. PREDNISONE WATSON [Suspect]
     Active Substance: PREDNISONE
     Dosage: 10 MILLIGRAM DAILY;
     Route: 065

REACTIONS (2)
  - Wrong technique in product usage process [Unknown]
  - Gastritis [Recovering/Resolving]
